FAERS Safety Report 24400690 (Version 1)
Quarter: 2024Q4

REPORT INFORMATION
  Report Type: Spontaneous
  Country: US (occurrence: US)
  Receive Date: 20241006
  Receipt Date: 20241006
  Transmission Date: 20250115
  Serious: Yes (Hospitalization, Other)
  Sender: DR REDDYS
  Company Number: US-DRL-USA-LIT/USA/24/0014499

PATIENT
  Age: 30 Year
  Sex: Male

DRUGS (1)
  1. METHAMPHETAMINE [Suspect]
     Active Substance: METHAMPHETAMINE
     Indication: Product used for unknown indication

REACTIONS (7)
  - Drug abuse [Unknown]
  - Pulse absent [Unknown]
  - Mucosal haemorrhage [Unknown]
  - Acute kidney injury [Unknown]
  - Chest pain [Unknown]
  - Cardiac arrest [Unknown]
  - Pulmonary embolism [Unknown]
